FAERS Safety Report 5056394-X (Version None)
Quarter: 2006Q3

REPORT INFORMATION
  Report Type: 
  Country: None (occurrence: None)
  Receive Date: 20060720
  Receipt Date: 20060712
  Transmission Date: 20061208
  Serious: Yes (Hospitalization, Disabling)
  Sender: FDA-Public Use
  Company Number: US-ROCHE-455464

PATIENT
  Age: 59 Year
  Sex: Female
  Weight: 136.1 kg

DRUGS (10)
  1. DEMADEX [Suspect]
     Indication: DRUG USE FOR UNKNOWN INDICATION
     Route: 048
     Dates: start: 20040215, end: 20040315
  2. MAXZIDE [Concomitant]
     Dates: start: 20040615
  3. PREDNISONE [Concomitant]
     Indication: SYSTEMIC LUPUS ERYTHEMATOSUS
     Dosage: REPORTED AS LOW DOSE
  4. CELEBREX [Concomitant]
     Indication: SYSTEMIC LUPUS ERYTHEMATOSUS
  5. PEPCID [Concomitant]
  6. TYLENOL W/ CODEINE NO. 3 [Concomitant]
  7. PLAQUENIL [Concomitant]
  8. SINGULAIR [Concomitant]
     Route: 048
  9. ALBUTEROL SPIROS [Concomitant]
  10. 1 CONCOMITANT DRUG [Concomitant]

REACTIONS (8)
  - ANAEMIA [None]
  - CONFUSIONAL STATE [None]
  - DEHYDRATION [None]
  - GASTROINTESTINAL HAEMORRHAGE [None]
  - HYPOKALAEMIA [None]
  - MEDICATION ERROR [None]
  - POST PROCEDURAL HAEMORRHAGE [None]
  - POST-TRAUMATIC STRESS DISORDER [None]
